FAERS Safety Report 4648632-X (Version None)
Quarter: 2005Q2

REPORT INFORMATION
  Report Type: 
  Country: None (occurrence: None)
  Receive Date: 20050429
  Receipt Date: 20050216
  Transmission Date: 20051028
  Serious: No
  Sender: FDA-Public Use
  Company Number: US-GLAXOSMITHKLINE-A0545951A

PATIENT
  Age: 61 Year
  Sex: Male

DRUGS (1)
  1. AMERGE [Suspect]
     Indication: MIGRAINE

REACTIONS (1)
  - MIGRAINE [None]
